FAERS Safety Report 17501247 (Version 1)
Quarter: 2020Q1

REPORT INFORMATION
  Report Type: Spontaneous
  Country: US (occurrence: US)
  Receive Date: 20200304
  Receipt Date: 20200304
  Transmission Date: 20200409
  Serious: Yes (Other)
  Sender: FDA-Public Use
  Company Number: None

PATIENT
  Age: 8 Year
  Sex: Female

DRUGS (4)
  1. MONTELUKAST [Suspect]
     Active Substance: MONTELUKAST SODIUM
     Indication: DYSPNOEA
     Dates: start: 20180501, end: 20180830
  2. ZYRTEC [Concomitant]
     Active Substance: CETIRIZINE HYDROCHLORIDE
  3. MONTELUKAST [Suspect]
     Active Substance: MONTELUKAST SODIUM
     Indication: HYPERSENSITIVITY
     Dates: start: 20180501, end: 20180830
  4. ALBUTERNOL [Concomitant]

REACTIONS (6)
  - Depressed mood [None]
  - Dyspnoea [None]
  - Abnormal behaviour [None]
  - Product quality issue [None]
  - Crying [None]
  - Irritability [None]

NARRATIVE: CASE EVENT DATE: 20180618
